FAERS Safety Report 7026775-3 (Version None)
Quarter: 2010Q4

REPORT INFORMATION
  Report Type: 
  Country: None (occurrence: None)
  Receive Date: 20101004
  Receipt Date: 20100923
  Transmission Date: 20110411
  Serious: Yes (Hospitalization, Other)
  Sender: FDA-Public Use
  Company Number: US-WYE-H17747410

PATIENT
  Sex: Female

DRUGS (7)
  1. PRISTIQ [Suspect]
     Indication: DEPRESSION
     Route: 048
     Dates: end: 20100101
  2. PRISTIQ [Suspect]
     Route: 048
     Dates: start: 20100101
  3. LASIX [Concomitant]
     Dosage: UNKNOWN
  4. ZOLOFT [Suspect]
     Indication: DEPRESSION
     Route: 048
     Dates: start: 20100101, end: 20100101
  5. LISINOPRIL [Concomitant]
     Dosage: UNKNOWN
  6. LORTAB [Concomitant]
     Dosage: UNKNOWN
  7. LOSARTAN POTASSIUM [Concomitant]
     Dosage: UNKNOWN

REACTIONS (7)
  - DIARRHOEA [None]
  - DRUG INEFFECTIVE [None]
  - DRUG WITHDRAWAL SYNDROME [None]
  - FOREIGN BODY [None]
  - HOSPITALISATION [None]
  - LUNG NEOPLASM MALIGNANT [None]
  - PANIC REACTION [None]
